FAERS Safety Report 7690862-7 (Version None)
Quarter: 2011Q3

REPORT INFORMATION
  Report Type: 
  Country: None (occurrence: None)
  Receive Date: 20110818
  Receipt Date: 20110809
  Transmission Date: 20111222
  Serious: Yes (Hospitalization, Disabling)
  Sender: FDA-Public Use
  Company Number: PHHY2011GB71373

PATIENT
  Age: 79 Year
  Sex: Female

DRUGS (1)
  1. ALENDRONIC ACID [Suspect]
     Dosage: UNK
     Route: 048

REACTIONS (2)
  - PAIN [None]
  - STRESS FRACTURE [None]
